FAERS Safety Report 16234819 (Version 1)
Quarter: 2019Q2

REPORT INFORMATION
  Report Type: Spontaneous
  Country: CN (occurrence: CN)
  Receive Date: 20190424
  Receipt Date: 20190424
  Transmission Date: 20190711
  Serious: Yes (Other)
  Sender: FDA-Public Use
  Company Number: CN-PFIZER INC-2019177398

PATIENT
  Age: 82 Year
  Sex: Male
  Weight: 55 kg

DRUGS (3)
  1. TRIAMCINOLONE ACETONIDE AND ECONAZOLE [Concomitant]
  2. SOLU-MEDROL [Suspect]
     Active Substance: METHYLPREDNISOLONE SODIUM SUCCINATE
     Dosage: 40 MG, UNK
     Route: 041
     Dates: start: 20190321
  3. FUSIDIC ACID [Concomitant]
     Active Substance: FUSIDIC ACID

REACTIONS (3)
  - Skin exfoliation [Recovering/Resolving]
  - Erythema multiforme [Recovering/Resolving]
  - Condition aggravated [Recovering/Resolving]

NARRATIVE: CASE EVENT DATE: 20190325
